FAERS Safety Report 17438046 (Version 1)
Quarter: 2020Q1

REPORT INFORMATION
  Report Type: Report from Study
  Country: CA (occurrence: CA)
  Receive Date: 20200220
  Receipt Date: 20200220
  Transmission Date: 20200409
  Serious: Yes (Other)
  Sender: FDA-Public Use
  Company Number: PHHY2017CA115797

PATIENT
  Age: 83 Year
  Sex: Male
  Weight: 64.85 kg

DRUGS (7)
  1. FENTANYL. [Suspect]
     Active Substance: FENTANYL
     Dosage: 25 UG/HR, UNK
     Route: 065
  2. PAMIDRONATE DISODIUM. [Concomitant]
     Active Substance: PAMIDRONATE DISODIUM
     Indication: PROPHYLAXIS
     Dosage: 90 MG, Q4W
     Route: 042
  3. SANDOSTATIN LAR DEPOT [Suspect]
     Active Substance: OCTREOTIDE ACETATE
     Indication: CARCINOID TUMOUR
     Dosage: 20 MG, QMO (EVERY 4 WEEKS)
     Route: 030
     Dates: start: 20170705
  4. SANDOSTATIN LAR DEPOT [Suspect]
     Active Substance: OCTREOTIDE ACETATE
     Dosage: 30 MG, Q3W
     Route: 048
     Dates: start: 20180829
  5. FENTANYL. [Suspect]
     Active Substance: FENTANYL
     Indication: PRODUCT USED FOR UNKNOWN INDICATION
     Dosage: 62.5 UG, PRN
     Route: 065
  6. MORPHINE [Concomitant]
     Active Substance: MORPHINE
     Indication: PRODUCT USED FOR UNKNOWN INDICATION
     Dosage: UNK UNK, PRN
     Route: 048
  7. SANDOSTATIN LAR DEPOT [Suspect]
     Active Substance: OCTREOTIDE ACETATE
     Dosage: 30 MG, QMO (EVERY 4 WEEKS)
     Route: 030

REACTIONS (28)
  - Malignant neoplasm progression [Unknown]
  - Metastasis [Unknown]
  - Musculoskeletal pain [Unknown]
  - Erythema [Recovered/Resolved]
  - Injection site pain [Recovered/Resolved]
  - Inappropriate schedule of product administration [Unknown]
  - Pain in extremity [Unknown]
  - Pruritus [Recovered/Resolved]
  - Body temperature decreased [Unknown]
  - Decreased appetite [Unknown]
  - Arthralgia [Unknown]
  - Carcinoid tumour [Unknown]
  - Heart rate decreased [Unknown]
  - Injection site pain [Recovered/Resolved]
  - General physical health deterioration [Unknown]
  - Oedema peripheral [Unknown]
  - Neck pain [Unknown]
  - Blood pressure increased [Unknown]
  - Movement disorder [Unknown]
  - Asthenia [Unknown]
  - Chest injury [Unknown]
  - Bone pain [Unknown]
  - Needle issue [Unknown]
  - Pollakiuria [Unknown]
  - Fall [Unknown]
  - Musculoskeletal stiffness [Unknown]
  - Torticollis [Unknown]
  - Weight decreased [Unknown]

NARRATIVE: CASE EVENT DATE: 20170705
